FAERS Safety Report 5887513-0 (Version None)
Quarter: 2008Q3

REPORT INFORMATION
  Report Type: 
  Country: None (occurrence: None)
  Receive Date: 20080918
  Receipt Date: 20080903
  Transmission Date: 20090109
  Serious: Yes (Other)
  Sender: FDA-Public Use
  Company Number: PHBS2008CZ05695

PATIENT
  Sex: Male

DRUGS (1)
  1. PAMIDRONATE DISODIUM [Suspect]
     Dosage: 0.5 MG/KG BODY WEIGHT/DAY
     Route: 042

REACTIONS (13)
  - ACUTE RESPIRATORY DISTRESS SYNDROME [None]
  - BIOPSY PARATHYROID GLAND ABNORMAL [None]
  - BLOOD CALCIUM ABNORMAL [None]
  - CATHETER SEPSIS [None]
  - CEREBRAL ATROPHY [None]
  - DRUG EFFECT DECREASED [None]
  - HYPERCALCAEMIA [None]
  - HYPERPARATHYROIDISM PRIMARY [None]
  - HYPOPARATHYROIDISM [None]
  - HYPOTONIA NEONATAL [None]
  - NEURODEVELOPMENTAL DISORDER [None]
  - NUCLEAR MAGNETIC RESONANCE IMAGING ABNORMAL [None]
  - PARATHYROIDECTOMY [None]
